FAERS Safety Report 7311529-0 (Version None)
Quarter: 2011Q1

REPORT INFORMATION
  Report Type: 
  Country: None (occurrence: None)
  Receive Date: 20110224
  Receipt Date: 20101216
  Transmission Date: 20110831
  Serious: No
  Sender: FDA-Public Use
  Company Number: A0900158A

PATIENT
  Sex: Male

DRUGS (1)
  1. ARZERRA [Suspect]
     Dosage: 2000MG WEEKLY
     Route: 042
     Dates: start: 20101115

REACTIONS (1)
  - HYPERCALCAEMIA [None]
